FAERS Safety Report 12463694 (Version 6)
Quarter: 2016Q4

REPORT INFORMATION
  Report Type: Spontaneous
  Country: US (occurrence: US)
  Receive Date: 20160614
  Receipt Date: 20161227
  Transmission Date: 20170207
  Serious: Yes (Other)
  Sender: FDA-Public Use
  Company Number: US-PFIZER INC-2016284059

PATIENT
  Age: 62 Year
  Sex: Female

DRUGS (4)
  1. HYDROCODONE/ACETAMINOPHEN [Concomitant]
     Active Substance: ACETAMINOPHEN\HYDROCODONE
     Dosage: UNK
  2. CALCIUM 600+D [Concomitant]
     Active Substance: CALCIUM\VITAMIN D
     Dosage: UNK
  3. IBRANCE [Suspect]
     Active Substance: PALBOCICLIB
     Indication: BREAST CANCER FEMALE
     Dosage: 100 MG, CYCLIC(1 CAP BY MOUTH, FOR 21 DAYS ON/7 DAYS OFF/DAILY FOR 21DAYS ON +7DAYS OFF THEN REPEAT)
     Route: 048
  4. FASLODEX [Concomitant]
     Active Substance: FULVESTRANT
     Dosage: UNK

REACTIONS (14)
  - Decreased appetite [Unknown]
  - Fatigue [Unknown]
  - Pain in extremity [Unknown]
  - Chest pain [Unknown]
  - Dyspnoea [Unknown]
  - Angina pectoris [Unknown]
  - Pruritus [Unknown]
  - Constipation [Unknown]
  - Breast cancer female [Unknown]
  - Stress [Unknown]
  - White blood cell count decreased [Unknown]
  - Disease progression [Unknown]
  - Oral pain [Unknown]
  - Depression [Unknown]
